FAERS Safety Report 10459620 (Version 1)
Quarter: 2014Q3

REPORT INFORMATION
  Report Type: Spontaneous
  Country: GB (occurrence: GB)
  Receive Date: 20140917
  Receipt Date: 20140917
  Transmission Date: 20150326
  Serious: Yes (Hospitalization, Other)
  Sender: FDA-Public Use
  Company Number: GB-ACTAVIS-2014-19884

PATIENT
  Age: 88 Year
  Sex: Male

DRUGS (5)
  1. SPIRONOLACTONE (UNKNOWN) [Suspect]
     Active Substance: SPIRONOLACTONE
     Indication: DILATATION VENTRICULAR
     Dosage: 50 MG, QAM
     Route: 048
     Dates: end: 20110107
  2. ZOPICLONE [Concomitant]
     Active Substance: ZOPICLONE
     Indication: PRODUCT USED FOR UNKNOWN INDICATION
     Dosage: 7.5 MG, QHS
     Route: 065
  3. BISOPROLOL [Concomitant]
     Active Substance: BISOPROLOL
     Indication: PRODUCT USED FOR UNKNOWN INDICATION
     Dosage: 1.25 MG, DAILY
     Route: 065
  4. FERROUS FUMARATE [Concomitant]
     Active Substance: FERROUS FUMARATE
     Indication: PRODUCT USED FOR UNKNOWN INDICATION
     Dosage: 1 DF, TID
     Route: 065
     Dates: end: 20110108
  5. BUMETANIDE (UNKNOWN) [Suspect]
     Active Substance: BUMETANIDE
     Indication: CARDIAC DISORDER
     Dosage: 5 MG, DAILY: 3MG IN THE MORNING AND 2MG AT LUNCHTIME
     Route: 048
     Dates: end: 20110107

REACTIONS (10)
  - Renal failure acute [Recovered/Resolved]
  - Hyperkalaemia [Recovered/Resolved]
  - Lymphoedema [Unknown]
  - Gastritis [Unknown]
  - Duodenal ulcer [Unknown]
  - Dehydration [Unknown]
  - Duodenitis [Unknown]
  - Gastrointestinal haemorrhage [Unknown]
  - Syncope [Unknown]
  - Chest pain [Unknown]

NARRATIVE: CASE EVENT DATE: 20110107
